FAERS Safety Report 6317012-3 (Version None)
Quarter: 2009Q3

REPORT INFORMATION
  Report Type: 
  Country: None (occurrence: None)
  Receive Date: 20090820
  Receipt Date: 20090807
  Transmission Date: 20100115
  Serious: Yes (Death)
  Sender: FDA-Public Use
  Company Number: KR-PFIZER INC-2009250954

PATIENT
  Age: 75 Year

DRUGS (2)
  1. VORICONAZOLE [Suspect]
     Indication: ASPERGILLOSIS
     Dosage: 300 MG, 2X/DAY
     Route: 042
     Dates: start: 20070330, end: 20070407
  2. AMIKACIN [Concomitant]
     Indication: PNEUMONIA
     Dosage: UNK
     Dates: start: 20070325, end: 20070407

REACTIONS (1)
  - HYPOXIA [None]
